FAERS Safety Report 6107550-0 (Version None)
Quarter: 2009Q1

REPORT INFORMATION
  Report Type: 
  Country: None (occurrence: None)
  Receive Date: 20090309
  Receipt Date: 20090226
  Transmission Date: 20090719
  Serious: Yes (Other)
  Sender: FDA-Public Use
  Company Number: PHHY2009SE06961

PATIENT
  Sex: Female

DRUGS (2)
  1. EXELON [Suspect]
     Indication: DEMENTIA
     Dosage: 9.5 MG, QD
     Route: 062
  2. MIRTAZAPINE [Concomitant]
     Dosage: 30 MG, UNK

REACTIONS (1)
  - TARDIVE DYSKINESIA [None]
